FAERS Safety Report 17217894 (Version 1)
Quarter: 2019Q4

REPORT INFORMATION
  Report Type: Spontaneous
  Country: US (occurrence: US)
  Receive Date: 20191207
  Receipt Date: 20191207
  Transmission Date: 20200122
  Serious: No
  Sender: FDA-Public Use
  Company Number: None

PATIENT
  Age: 60 Year
  Sex: Female

DRUGS (2)
  1. CYCLOSPORINE (NON-MODIFIED) 25MG APOTEX [Suspect]
     Active Substance: CYCLOSPORINE
     Indication: HAEMOLYTIC ANAEMIA
     Route: 048
  2. CYCLOSPORINE (NON-MODIFIED) 25MG APOTEX [Suspect]
     Active Substance: CYCLOSPORINE
     Indication: TOXOPLASMOSIS
     Route: 048

REACTIONS (4)
  - Therapy change [None]
  - Chest pain [None]
  - Haemoglobin decreased [None]
  - Palpitations [None]

NARRATIVE: CASE EVENT DATE: 20191125
